FAERS Safety Report 4430559-X (Version None)
Quarter: 2004Q3

REPORT INFORMATION
  Report Type: 
  Country: None (occurrence: None)
  Receive Date: 20040818
  Receipt Date: 20040810
  Transmission Date: 20050211
  Serious: Yes (Other)
  Sender: FDA-Public Use
  Company Number: 207848

PATIENT
  Age: 41 Year
  Sex: Male

DRUGS (5)
  1. MABTHERA(RITUXIMAB) CONC FOR SOLUTION FOR INFUSION [Suspect]
     Indication: CHRONIC LYMPHOCYTIC LEUKAEMIA
     Dosage: 375 MG/M2, INTRAVENOUS
     Route: 042
     Dates: start: 20040615
  2. FLUDARABINE PHOSPHATE [Concomitant]
  3. CYCLOPHOSPHAMIDE [Concomitant]
  4. SEPTRA [Concomitant]
  5. VALTREX [Concomitant]

REACTIONS (1)
  - ANAPHYLACTIC REACTION [None]
